FAERS Safety Report 9815411 (Version 1)
Quarter: 2014Q1

REPORT INFORMATION
  Report Type: Spontaneous
  Country: FR (occurrence: FR)
  Receive Date: 20140114
  Receipt Date: 20140114
  Transmission Date: 20141002
  Serious: Yes (Hospitalization)
  Sender: FDA-Public Use
  Company Number: FR-ASTRAZENECA-2014SE01500

PATIENT
  Age: 80 Year
  Sex: Female

DRUGS (7)
  1. INEXIUM [Suspect]
     Route: 048
  2. METFORMIN [Suspect]
     Route: 048
  3. FUNGIZONE [Suspect]
     Dosage: DAILY
     Route: 048
     Dates: start: 20130314, end: 20130317
  4. COVERAM [Suspect]
     Route: 048
  5. TOPALGIC [Suspect]
     Route: 048
  6. DAONIL [Suspect]
     Route: 048
  7. FRAGMINE [Suspect]
     Route: 058

REACTIONS (1)
  - Hypokalaemia [Recovered/Resolved]
